FAERS Safety Report 4489453-0 (Version None)
Quarter: 2004Q4

REPORT INFORMATION
  Report Type: 
  Country: None (occurrence: None)
  Receive Date: 20041026
  Receipt Date: 20041007
  Transmission Date: 20050328
  Serious: Yes (Other)
  Sender: FDA-Public Use
  Company Number: EWC041040922

PATIENT
  Age: 61 Year
  Sex: Female

DRUGS (4)
  1. OLANZAPINE [Suspect]
     Indication: DEPRESSION
     Dosage: 17.5 MG DAY
     Dates: start: 20040411, end: 20040727
  2. LORAZEPAM [Concomitant]
  3. RISPERDAL [Concomitant]
  4. CITALOPRAM HYDROBROMIDE [Concomitant]

REACTIONS (5)
  - ANGIONEUROTIC OEDEMA [None]
  - EYELID OEDEMA [None]
  - FACE OEDEMA [None]
  - MONOCYTOSIS [None]
  - VIRAL INFECTION [None]
